FAERS Safety Report 15643751 (Version 3)
Quarter: 2019Q1

REPORT INFORMATION
  Report Type: Spontaneous
  Country: DK (occurrence: DK)
  Receive Date: 20181121
  Receipt Date: 20190313
  Transmission Date: 20190417
  Serious: Yes (Hospitalization, Disabling, Other)
  Sender: FDA-Public Use
  Company Number: DK-AMGEN-DNKSP2018163510

PATIENT
  Age: 77 Year
  Sex: Female

DRUGS (3)
  1. CALCIUM [Concomitant]
     Active Substance: CALCIUM
     Dosage: 400 MG, UNK
  2. PROLIA [Suspect]
     Active Substance: DENOSUMAB
     Indication: OSTEOPOROSIS
     Dosage: 60 MILLIGRAM, Q6MO
     Route: 058
     Dates: start: 20140801, end: 20160308
  3. CHOLECALCIFEROL [Concomitant]
     Active Substance: CHOLECALCIFEROL
     Dosage: 19 MCG, UNK

REACTIONS (6)
  - Hypercalcaemia [Unknown]
  - Diarrhoea [Unknown]
  - Hyperparathyroidism [Unknown]
  - Spinal compression fracture [Not Recovered/Not Resolved]
  - Dehydration [Recovered/Resolved]
  - Hypoparathyroidism [Unknown]

NARRATIVE: CASE EVENT DATE: 201609
